FAERS Safety Report 11388297 (Version 5)
Quarter: 2019Q3

REPORT INFORMATION
  Report Type: Report from Study
  Country: JP (occurrence: JP)
  Receive Date: 20150817
  Receipt Date: 20190711
  Transmission Date: 20191004
  Serious: Yes (Hospitalization, Disabling, Other)
  Sender: FDA-Public Use
  Company Number: JP-JNJFOC-20130813256

PATIENT
  Age: 49 Year
  Sex: Male

DRUGS (84)
  1. COBICISTAT W/DARUNAVIR ETHANOLATE [Suspect]
     Active Substance: COBICISTAT\DARUNAVIR ETHANOLATE
     Indication: HIV INFECTION
     Route: 048
     Dates: start: 20170215, end: 20170727
  2. ZITHROMAC [Concomitant]
     Active Substance: AZITHROMYCIN DIHYDRATE
     Route: 048
     Dates: start: 20170215
  3. CRAVIT [Concomitant]
     Active Substance: LEVOFLOXACIN
     Indication: MYCOBACTERIUM AVIUM COMPLEX INFECTION
     Route: 048
     Dates: start: 20120401, end: 20131001
  4. ADVATE [Concomitant]
     Active Substance: ANTIHEMOPHILIC FACTOR, HUMAN RECOMBINANT
     Dosage: 2-3 TIMES
     Route: 065
     Dates: start: 20121018, end: 20121022
  5. BLOPRESS [Concomitant]
     Active Substance: CANDESARTAN CILEXETIL
     Route: 048
     Dates: start: 20170215
  6. OPAPROSMON [Concomitant]
     Active Substance: LIMAPROST
     Indication: LUMBAR SPINAL STENOSIS
     Route: 048
     Dates: start: 20120621, end: 20121206
  7. TEPRENONE [Concomitant]
     Active Substance: TEPRENONE
     Indication: GASTRITIS
     Route: 048
     Dates: start: 20130501
  8. TEPRENONE [Concomitant]
     Active Substance: TEPRENONE
     Indication: PROPHYLAXIS
     Route: 048
     Dates: start: 20170215
  9. KOGENATE [Concomitant]
     Active Substance: ANTIHEMOPHILIC FACTOR, HUMAN RECOMBINANT
     Indication: HAEMOPHILIA
     Route: 065
     Dates: start: 20140921, end: 20141223
  10. BIOFERMIN [Concomitant]
     Active Substance: DIETARY SUPPLEMENT\PROBIOTICS
     Route: 048
     Dates: start: 20180110, end: 20180123
  11. NORVIR [Suspect]
     Active Substance: RITONAVIR
     Route: 048
     Dates: start: 20110609
  12. ZITHROMAC [Concomitant]
     Active Substance: AZITHROMYCIN DIHYDRATE
     Indication: MYCOBACTERIUM AVIUM COMPLEX INFECTION
     Route: 048
     Dates: start: 20110511, end: 20131002
  13. MYCOBUTIN [Concomitant]
     Active Substance: RIFABUTIN
     Indication: MYCOBACTERIUM AVIUM COMPLEX INFECTION
     Route: 048
     Dates: start: 20100401, end: 20100428
  14. CROSS EIGHT M [Concomitant]
     Active Substance: ANTIHEMOPHILIC FACTOR HUMAN
     Dosage: 2-3 TIMES
     Route: 065
     Dates: start: 20130623, end: 20130806
  15. CROSS EIGHT M [Concomitant]
     Active Substance: ANTIHEMOPHILIC FACTOR HUMAN
     Dosage: 2-3 TIMES
     Route: 065
     Dates: start: 20130807, end: 20130904
  16. ADVATE [Concomitant]
     Active Substance: ANTIHEMOPHILIC FACTOR, HUMAN RECOMBINANT
     Indication: FACTOR VIII DEFICIENCY
     Dosage: 4-5 TIMES
     Route: 065
     Dates: start: 20120401, end: 20120610
  17. ADVATE [Concomitant]
     Active Substance: ANTIHEMOPHILIC FACTOR, HUMAN RECOMBINANT
     Route: 065
     Dates: start: 20141224
  18. BLOPRESS [Concomitant]
     Active Substance: CANDESARTAN CILEXETIL
     Indication: HYPERTENSION
     Route: 048
     Dates: start: 20120401
  19. CILNIDIPINE [Concomitant]
     Active Substance: CILNIDIPINE
     Indication: HYPERTENSION
     Route: 048
     Dates: start: 20180207
  20. FUROSEMIDE. [Concomitant]
     Active Substance: FUROSEMIDE
     Indication: HYPERTENSION
     Route: 065
     Dates: start: 20171213
  21. AMITIZA [Concomitant]
     Active Substance: LUBIPROSTONE
     Indication: CONSTIPATION
     Route: 048
     Dates: start: 20171117
  22. SAMSCA [Concomitant]
     Active Substance: TOLVAPTAN
     Route: 048
     Dates: start: 20170920
  23. MYCOBUTIN [Concomitant]
     Active Substance: RIFABUTIN
     Route: 048
     Dates: start: 20060925
  24. CROSS EIGHT M [Concomitant]
     Active Substance: ANTIHEMOPHILIC FACTOR HUMAN
     Indication: FACTOR VIII DEFICIENCY
     Dosage: 2-3 TIMES
     Route: 065
     Dates: start: 20121023, end: 20121128
  25. CROSS EIGHT M [Concomitant]
     Active Substance: ANTIHEMOPHILIC FACTOR HUMAN
     Dosage: 2-3 TIMES
     Route: 065
     Dates: start: 20121203, end: 20121206
  26. CROSS EIGHT M [Concomitant]
     Active Substance: ANTIHEMOPHILIC FACTOR HUMAN
     Dosage: 2-3 TIMES
     Route: 065
     Dates: start: 20130905, end: 20140915
  27. LYRICA [Concomitant]
     Active Substance: PREGABALIN
     Indication: LUMBAR SPINAL STENOSIS
     Route: 048
     Dates: start: 20120607
  28. LUCONAC [Concomitant]
     Route: 065
     Dates: start: 20180822, end: 20190212
  29. ATORVASTATIN [Concomitant]
     Active Substance: ATORVASTATIN
     Route: 061
     Dates: start: 20180314
  30. CALONAL [Concomitant]
     Active Substance: ACETAMINOPHEN
     Route: 065
     Dates: start: 20170215
  31. CEFCAPENE PIVOXIL HYDROCHLORIDE [Concomitant]
     Active Substance: CEFCAPENE PIVOXIL HYDROCHLORIDE
     Route: 048
     Dates: start: 20180110, end: 20180130
  32. CROSS EIGHT M [Concomitant]
     Active Substance: ANTIHEMOPHILIC FACTOR HUMAN
     Indication: HAEMARTHROSIS
     Dosage: 2-3 TIMES
     Route: 065
     Dates: start: 20120401, end: 20121019
  33. CROSS EIGHT M [Concomitant]
     Active Substance: ANTIHEMOPHILIC FACTOR HUMAN
     Dosage: 2-3 TIMES
     Route: 065
     Dates: start: 20121130, end: 20121202
  34. KOBALNON [Concomitant]
     Active Substance: TEPRENONE
     Indication: GASTRITIS
     Route: 048
     Dates: start: 20120401, end: 20121112
  35. URSO [Concomitant]
     Active Substance: URSODIOL
     Indication: HEPATITIS C
     Route: 048
     Dates: start: 20120401, end: 20121003
  36. LOXONIN [Concomitant]
     Active Substance: LOXOPROFEN SODIUM
     Indication: LUMBAR SPINAL STENOSIS
     Route: 048
     Dates: start: 20120809, end: 20121102
  37. NIZORAL [Concomitant]
     Active Substance: KETOCONAZOLE
     Route: 061
     Dates: start: 20180124
  38. FEBURIC [Concomitant]
     Active Substance: FEBUXOSTAT
     Indication: HYPERURICAEMIA
     Route: 048
     Dates: start: 20170922
  39. AMLODIPINE [Concomitant]
     Active Substance: AMLODIPINE BESYLATE
     Indication: HYPERTENSION
     Route: 048
     Dates: start: 20170712
  40. GENTACIN [Concomitant]
     Active Substance: GENTAMICIN SULFATE
     Route: 061
     Dates: start: 20170215
  41. DARUNAVIR [Suspect]
     Active Substance: DARUNAVIR
     Route: 048
     Dates: start: 20170728
  42. ETHAMBUTOL [Concomitant]
     Active Substance: ETHAMBUTOL HYDROCHLORIDE
     Indication: MYCOBACTERIUM AVIUM COMPLEX INFECTION
     Route: 048
     Dates: start: 20120401, end: 20131002
  43. CROSS EIGHT M [Concomitant]
     Active Substance: ANTIHEMOPHILIC FACTOR HUMAN
     Dosage: 2-3 TIMES
     Route: 065
     Dates: start: 20121207, end: 20130322
  44. CROSS EIGHT M [Concomitant]
     Active Substance: ANTIHEMOPHILIC FACTOR HUMAN
     Dosage: 2-3 TIMES
     Route: 065
     Dates: start: 20130401, end: 20130622
  45. VESICARE [Concomitant]
     Active Substance: SOLIFENACIN SUCCINATE
     Indication: HYPERTONIC BLADDER
     Route: 048
     Dates: start: 20120401
  46. KOGENATE [Concomitant]
     Active Substance: ANTIHEMOPHILIC FACTOR, HUMAN RECOMBINANT
     Indication: FACTOR VIII DEFICIENCY
     Route: 065
     Dates: start: 20140916, end: 20140920
  47. FEIBA [Concomitant]
     Active Substance: ANTI-INHIBITOR COAGULANT COMPLEX
     Indication: FACTOR VIII DEFICIENCY
     Route: 065
     Dates: start: 20170215
  48. ACUATIM [Concomitant]
     Active Substance: NADIFLOXACIN
     Route: 061
     Dates: start: 20190109, end: 20190212
  49. KALIMATE [Concomitant]
     Active Substance: CALCIUM POLYSTYRENE SULFONATE
     Route: 048
     Dates: start: 20170927
  50. ALFACALCIDOL [Concomitant]
     Active Substance: ALFACALCIDOL
     Route: 048
     Dates: start: 20170215
  51. MAGNESIUM OXIDE. [Concomitant]
     Active Substance: MAGNESIUM OXIDE
     Indication: CONSTIPATION
     Route: 048
     Dates: start: 20170215, end: 20171109
  52. HARNAL [Concomitant]
     Active Substance: TAMSULOSIN HYDROCHLORIDE
     Indication: DYSURIA
     Route: 048
     Dates: start: 20170215
  53. LANOCONAZOLE [Concomitant]
     Active Substance: LANOCONAZOLE
     Route: 061
     Dates: start: 20180314
  54. NORVIR [Suspect]
     Active Substance: RITONAVIR
     Indication: HIV INFECTION
     Route: 048
     Dates: start: 20060313, end: 20110608
  55. ETHAMBUTOL [Concomitant]
     Active Substance: ETHAMBUTOL HYDROCHLORIDE
     Indication: OPPORTUNISTIC INFECTION PROPHYLAXIS
     Route: 048
     Dates: start: 20131003
  56. ETHAMBUTOL [Concomitant]
     Active Substance: ETHAMBUTOL HYDROCHLORIDE
     Route: 048
     Dates: start: 20170215, end: 20171005
  57. ZITHROMAC [Concomitant]
     Active Substance: AZITHROMYCIN DIHYDRATE
     Indication: OPPORTUNISTIC INFECTION PROPHYLAXIS
     Route: 048
     Dates: start: 20131003
  58. VESICARE [Concomitant]
     Active Substance: SOLIFENACIN SUCCINATE
     Route: 048
     Dates: start: 20170215
  59. DALACIN T [Concomitant]
     Active Substance: CLINDAMYCIN PHOSPHATE
     Route: 061
     Dates: start: 20190213
  60. RULID [Concomitant]
     Active Substance: ROXITHROMYCIN
     Route: 048
     Dates: start: 20180207, end: 20180306
  61. ANTEBATE [Concomitant]
     Active Substance: BETAMETHASONE DIPROPIONATE
     Route: 061
     Dates: start: 20180124
  62. PICOSULFATE NA [Concomitant]
     Active Substance: SODIUM PICOSULFATE
     Indication: CONSTIPATION
     Route: 048
     Dates: start: 20171227
  63. DIART [Concomitant]
     Active Substance: AZOSEMIDE
     Indication: OEDEMA PERIPHERAL
     Route: 048
     Dates: start: 20171227
  64. AZUNOL [Concomitant]
     Route: 061
     Dates: start: 20170215
  65. DARUNAVIR [Suspect]
     Active Substance: DARUNAVIR
     Indication: HIV INFECTION
     Dosage: 400 MG X 2 ONCE DAILY
     Route: 048
     Dates: start: 20120906
  66. EPZICOM [Suspect]
     Active Substance: ABACAVIR SULFATE\LAMIVUDINE
     Indication: PROPHYLAXIS
     Route: 048
     Dates: start: 20170215
  67. MYCOBUTIN [Concomitant]
     Active Substance: RIFABUTIN
     Indication: HIV INFECTION
     Route: 048
     Dates: start: 20110511, end: 20131002
  68. CROSS EIGHT M [Concomitant]
     Active Substance: ANTIHEMOPHILIC FACTOR HUMAN
     Dosage: 2-3 TIMES
     Route: 065
     Dates: start: 20121129, end: 20121129
  69. CROSS EIGHT M [Concomitant]
     Active Substance: ANTIHEMOPHILIC FACTOR HUMAN
     Dosage: 2-3 TIMES
     Route: 065
     Dates: start: 20130323, end: 20130331
  70. CROSS EIGHT M [Concomitant]
     Active Substance: ANTIHEMOPHILIC FACTOR HUMAN
     Route: 065
     Dates: start: 20150513
  71. KOBALNON [Concomitant]
     Active Substance: TEPRENONE
     Route: 048
     Dates: start: 20121113, end: 20130430
  72. FEIBA [Concomitant]
     Active Substance: ANTI-INHIBITOR COAGULANT COMPLEX
     Indication: FACTOR VIII DEFICIENCY
     Route: 065
     Dates: start: 20151104
  73. EURAX [Concomitant]
     Active Substance: CROTAMITON
     Route: 065
     Dates: start: 20180313
  74. NEXIUM [Concomitant]
     Active Substance: ESOMEPRAZOLE MAGNESIUM
     Indication: PROPHYLAXIS
     Route: 048
     Dates: start: 20170215
  75. EPZICOM [Suspect]
     Active Substance: ABACAVIR SULFATE\LAMIVUDINE
     Indication: HIV INFECTION
     Route: 048
     Dates: start: 20071001
  76. ADVATE [Concomitant]
     Active Substance: ANTIHEMOPHILIC FACTOR, HUMAN RECOMBINANT
     Dosage: 2-3 TIMES
     Route: 065
     Dates: start: 20120611, end: 20121003
  77. ADVATE [Concomitant]
     Active Substance: ANTIHEMOPHILIC FACTOR, HUMAN RECOMBINANT
     Dosage: 2-3 TIMES
     Route: 065
     Dates: start: 20121004, end: 20121017
  78. ZYLORIC [Concomitant]
     Active Substance: ALLOPURINOL
     Indication: HYPERURICAEMIA
     Route: 048
     Dates: start: 20120401, end: 20140812
  79. PLATIBIT [Concomitant]
     Indication: OSTEOPENIA
     Route: 048
     Dates: start: 20120401
  80. LYRICA [Concomitant]
     Active Substance: PREGABALIN
     Route: 048
     Dates: start: 20171213
  81. LAMISIL [Concomitant]
     Active Substance: TERBINAFINE HYDROCHLORIDE
     Route: 061
     Dates: start: 20180822
  82. LULICON [Concomitant]
     Active Substance: LULICONAZOLE
     Route: 065
     Dates: start: 20180606
  83. HEPARINOID [Concomitant]
     Active Substance: CHONDROITIN SULFATE (BOVINE)
     Route: 061
     Dates: start: 20170912
  84. MIYA-BM [Concomitant]
     Active Substance: CLOSTRIDIUM BUTYRICUM SPORES STRAIN M-55
     Indication: FAECES SOFT
     Route: 048
     Dates: start: 20170215

REACTIONS (24)
  - Anaemia [Not Recovered/Not Resolved]
  - Faeces soft [Not Recovered/Not Resolved]
  - C-reactive protein increased [Recovering/Resolving]
  - Folliculitis [Not Recovered/Not Resolved]
  - Oesophageal candidiasis [Recovering/Resolving]
  - Abscess limb [Recovered/Resolved]
  - Gastrooesophageal reflux disease [Not Recovered/Not Resolved]
  - Gastric polyps [Not Recovered/Not Resolved]
  - Panniculitis [Not Recovered/Not Resolved]
  - Constipation [Not Recovered/Not Resolved]
  - Hyperkalaemia [Not Recovered/Not Resolved]
  - Tinea pedis [Not Recovered/Not Resolved]
  - Factor VIII deficiency [Not Recovered/Not Resolved]
  - Hepatitis C [Not Recovered/Not Resolved]
  - Peripheral swelling [Recovered/Resolved]
  - Hiatus hernia [Not Recovered/Not Resolved]
  - Femur fracture [Recovering/Resolving]
  - Pseudohyperkalaemia [Recovering/Resolving]
  - Cellulitis [Recovering/Resolving]
  - Arthritis bacterial [Recovered/Resolved]
  - Haemophilic arthropathy [Not Recovered/Not Resolved]
  - Hypertriglyceridaemia [Not Recovered/Not Resolved]
  - Erectile dysfunction [Not Recovered/Not Resolved]
  - Hyperuricaemia [Not Recovered/Not Resolved]

NARRATIVE: CASE EVENT DATE: 20121010
